FAERS Safety Report 21050923 (Version 2)
Quarter: 2022Q3

REPORT INFORMATION
  Report Type: Spontaneous
  Country: US (occurrence: US)
  Receive Date: 20220707
  Receipt Date: 20220712
  Transmission Date: 20221026
  Serious: Yes (Other)
  Sender: FDA-Public Use
  Company Number: US-BRISTOL-MYERS SQUIBB COMPANY-2022-069894

PATIENT
  Age: 48 Year
  Sex: Female
  Weight: 104.3 kg

DRUGS (5)
  1. ELIQUIS [Suspect]
     Active Substance: APIXABAN
     Indication: Product used for unknown indication
     Route: 065
  2. ELIQUIS [Suspect]
     Active Substance: APIXABAN
     Dosage: TOOK 2 OF TABLETS IN MORNING
     Route: 065
     Dates: start: 20220628
  3. TYVASO [Suspect]
     Active Substance: TREPROSTINIL
     Indication: Pulmonary arterial hypertension
     Dosage: 0.6 MG/ML
     Route: 055
     Dates: start: 20220624
  4. TYVASO [Suspect]
     Active Substance: TREPROSTINIL
     Dosage: 18-72 ?G (3-12 BREATHS), 4 IN 1 DAY
     Route: 055
     Dates: start: 202206
  5. TYVASO [Suspect]
     Active Substance: TREPROSTINIL
     Dosage: 2 BREATHS
     Route: 055
     Dates: start: 20220628

REACTIONS (9)
  - Loss of consciousness [Unknown]
  - Headache [Unknown]
  - Feeling hot [Unknown]
  - Dizziness [Unknown]
  - Somnolence [Unknown]
  - Heart rate increased [Unknown]
  - Dyspnoea [Unknown]
  - Peripheral swelling [Unknown]
  - Extra dose administered [Unknown]

NARRATIVE: CASE EVENT DATE: 20220601
